FAERS Safety Report 19104868 (Version 1)
Quarter: 2021Q2

REPORT INFORMATION
  Report Type: Spontaneous
  Country: DE (occurrence: DE)
  Receive Date: 20210408
  Receipt Date: 20210408
  Transmission Date: 20210717
  Serious: Yes (Hospitalization)
  Sender: FDA-Public Use
  Company Number: DE-DRREDDYS-GER/GER/21/0133649

PATIENT
  Age: 13 Year
  Sex: Female
  Weight: 57 kg

DRUGS (2)
  1. QUETIAPINE. [Suspect]
     Active Substance: QUETIAPINE
     Indication: DEPRESSION
     Dosage: 100MG ? 0 ? 150MG
     Route: 048
     Dates: end: 20181207
  2. QUETIAPINE. [Suspect]
     Active Substance: QUETIAPINE
     Indication: SUICIDAL IDEATION
     Dosage: UNKNOWN DOSE
     Route: 048
     Dates: start: 20181207, end: 20181207

REACTIONS (8)
  - Aggression [Recovered/Resolved]
  - Retrograde amnesia [Recovered/Resolved]
  - Somnolence [Recovered/Resolved]
  - Enuresis [Recovered/Resolved]
  - Sinus tachycardia [Recovered/Resolved]
  - Electrocardiogram QT prolonged [Recovered/Resolved]
  - Intentional overdose [Recovered/Resolved]
  - Agitation [Recovered/Resolved]

NARRATIVE: CASE EVENT DATE: 20181207
